FAERS Safety Report 18803534 (Version 1)
Quarter: 2021Q1

REPORT INFORMATION
  Report Type: Spontaneous
  Country: US (occurrence: US)
  Receive Date: 20210129
  Receipt Date: 20210129
  Transmission Date: 20210419
  Serious: No
  Sender: FDA-Public Use
  Company Number: US-UCBSA-2020011336

PATIENT
  Sex: Male

DRUGS (3)
  1. LEVETIRACETAM. [Suspect]
     Active Substance: LEVETIRACETAM
     Indication: MYOCLONIC EPILEPSY
     Dosage: UNK
  2. CLOBAZAM. [Suspect]
     Active Substance: CLOBAZAM
     Indication: MYOCLONIC EPILEPSY
     Dosage: UNK
  3. PHENOBARBITAL. [Suspect]
     Active Substance: PHENOBARBITAL
     Indication: MYOCLONIC EPILEPSY
     Dosage: UNK

REACTIONS (2)
  - Drug withdrawal convulsions [Unknown]
  - Multiple-drug resistance [Unknown]
